FAERS Safety Report 8908275 (Version 2)
Quarter: 2012Q4

REPORT INFORMATION
  Report Type: 
  Country: US (occurrence: US)
  Receive Date: 20121114
  Receipt Date: 20121120
  Transmission Date: 20130627
  Serious: Yes (Hospitalization, Other)
  Sender: FDA-Public Use
  Company Number: CHPA2012US023293

PATIENT
  Age: 27 Year
  Sex: Female

DRUGS (1)
  1. EXCEDRIN MIGRAINE [Suspect]
     Indication: HEADACHE
     Dosage: 2 tablets, Unk
     Route: 048
     Dates: start: 2012, end: 2012

REACTIONS (3)
  - Loss of consciousness [Unknown]
  - Blood alcohol increased [Unknown]
  - Alcohol interaction [Unknown]
